FAERS Safety Report 10027704 (Version 4)
Quarter: 2015Q3

REPORT INFORMATION
  Report Type: Spontaneous
  Country: DK (occurrence: DK)
  Receive Date: 20140321
  Receipt Date: 20150820
  Transmission Date: 20151125
  Serious: Yes (Other)
  Sender: FDA-Public Use
  Company Number: DK-PFIZER INC-2014077260

PATIENT
  Age: 58 Year
  Sex: Male

DRUGS (7)
  1. FURIX [Concomitant]
     Active Substance: FUROSEMIDE
     Indication: DIURETIC THERAPY
     Dosage: 40 MG, DAILY
     Dates: start: 1999
  2. ZARATOR [Suspect]
     Active Substance: ATORVASTATIN CALCIUM
     Indication: BLOOD CHOLESTEROL INCREASED
     Dosage: 20 MG, DAILY
     Dates: start: 2012, end: 20130528
  3. ZARATOR [Suspect]
     Active Substance: ATORVASTATIN CALCIUM
     Indication: MYOCARDIAL INFARCTION
     Dosage: 10 MG, DAILY
     Dates: start: 20000406, end: 2012
  4. CORODIL /00042901/ [Concomitant]
     Indication: HYPERTENSION
     Dosage: 20 MG, DAILY
     Dates: start: 2000
  5. NOVORAPID [Concomitant]
     Active Substance: INSULIN ASPART
     Indication: DIABETES MELLITUS
     Dosage: 10 + 10 IU, DAILY
     Dates: start: 2012
  6. INSULATARD /00646002/ [Concomitant]
     Active Substance: INSULIN NOS
     Indication: DIABETES MELLITUS
     Dosage: 14 IU, DAILY
     Dates: start: 2006
  7. PERSANTIN [Concomitant]
     Active Substance: DIPYRIDAMOLE
     Indication: ANTICOAGULANT THERAPY
     Dosage: 100 MG, 2X/DAY
     Dates: start: 1998

REACTIONS (2)
  - Pain in extremity [Recovered/Resolved]
  - Gait disturbance [Recovered/Resolved]

NARRATIVE: CASE EVENT DATE: 2012
